FAERS Safety Report 5067409-7 (Version None)
Quarter: 2006Q3

REPORT INFORMATION
  Report Type: 
  Country: None (occurrence: None)
  Receive Date: 20060727
  Receipt Date: 20060720
  Transmission Date: 20061208
  Serious: Yes (Hospitalization)
  Sender: FDA-Public Use
  Company Number: 2006-01315

PATIENT
  Age: 37 Year
  Sex: Male
  Weight: 87.5 kg

DRUGS (4)
  1. VELCADE [Suspect]
     Indication: COLORECTAL CANCER
     Dosage: 2.00 MG, INTRAVENOUS
     Route: 042
     Dates: start: 20060327, end: 20060508
  2. FLUOROURACIL [Suspect]
     Indication: COLORECTAL CANCER
     Dosage: 2.00 G, INTRAVENOUS
     Route: 042
     Dates: start: 20060327, end: 20060509
  3. OXALIPLATIN (OXALIPLATIN) INJECTION [Suspect]
     Indication: COLORECTAL CANCER
     Dosage: 170.00 MG, INTRAVENOUS
     Route: 042
     Dates: start: 20060327, end: 20060508
  4. LEUCOVORIN CALCIUM [Suspect]
     Indication: COLORECTAL CANCER
     Dosage: 400.00 MG, INTRAVENOUS
     Route: 042
     Dates: start: 20060327, end: 20060509

REACTIONS (9)
  - CATHETER RELATED COMPLICATION [None]
  - HAEMATOCRIT DECREASED [None]
  - HAEMOGLOBIN DECREASED [None]
  - LEUKOPENIA [None]
  - LYMPHOCYTE COUNT DECREASED [None]
  - NEUTROPENIA [None]
  - PLATELET COUNT DECREASED [None]
  - PYREXIA [None]
  - RED BLOOD CELL COUNT DECREASED [None]
